FAERS Safety Report 20784847 (Version 1)
Quarter: 2022Q2

REPORT INFORMATION
  Report Type: Spontaneous
  Country: US (occurrence: US)
  Receive Date: 20220504
  Receipt Date: 20220504
  Transmission Date: 20220721
  Serious: No
  Sender: FDA-Public Use
  Company Number: US-TEVA-2022-US-2026783

PATIENT
  Age: 83 Year
  Sex: Female

DRUGS (2)
  1. QVAR REDIHALER [Suspect]
     Active Substance: BECLOMETHASONE DIPROPIONATE
     Indication: Seasonal allergy
     Dosage: 1 PUFF TWICE DAILY
     Route: 065
     Dates: start: 202203
  2. QVAR REDIHALER [Suspect]
     Active Substance: BECLOMETHASONE DIPROPIONATE
     Indication: Asthma

REACTIONS (7)
  - Dizziness [Unknown]
  - Dry eye [Not Recovered/Not Resolved]
  - Feeling jittery [Unknown]
  - Sleep disorder [Unknown]
  - Lip swelling [Unknown]
  - Oropharyngeal pain [Unknown]
  - Lymph node pain [Unknown]

NARRATIVE: CASE EVENT DATE: 20220301
